FAERS Safety Report 9774784 (Version 1)
Quarter: 2013Q4

REPORT INFORMATION
  Report Type: Spontaneous
  Country: US (occurrence: US)
  Receive Date: 20131220
  Receipt Date: 20131220
  Transmission Date: 20140711
  Serious: Yes (Other)
  Sender: FDA-Public Use
  Company Number: US-PFIZER INC-2013364339

PATIENT
  Age: 71 Year
  Sex: Male
  Weight: 112.02 kg

DRUGS (8)
  1. TIKOSYN [Suspect]
     Indication: ATRIAL FIBRILLATION
     Dosage: 500 UG, 2X/DAY
     Route: 048
     Dates: start: 20131118
  2. NIFEDIPINE [Concomitant]
     Indication: HYPERTENSION
     Dosage: 60 MG, 1X/DAY
  3. PROPRANOLOL [Concomitant]
     Indication: HYPERTENSION
     Dosage: 100 MG, 1X/DAY
  4. FINASTERIDE [Concomitant]
     Dosage: 5 MG, 1X/DAY
  5. XARELTO [Concomitant]
     Dosage: 20 MG, 1X/DAY
  6. CALCIUM [Concomitant]
     Dosage: UNK
  7. ONE-A-DAY [Concomitant]
     Dosage: UNK
  8. COUMADINE [Concomitant]
     Dosage: UNK

REACTIONS (2)
  - Product expiration date issue [Unknown]
  - Atrial fibrillation [Unknown]
